FAERS Safety Report 15630209 (Version 1)
Quarter: 2018Q4

REPORT INFORMATION
  Report Type: Spontaneous
  Country: CA (occurrence: CA)
  Receive Date: 20181118
  Receipt Date: 20181118
  Transmission Date: 20190205
  Serious: Yes (Other)
  Sender: FDA-Public Use
  Company Number: CA-ICU MEDICAL, INC.-ICU2018CA00052

PATIENT

DRUGS (1)
  1. 1.5% GLYCINE IRRIGATION USP (3000 ML) [Suspect]
     Active Substance: GLYCINE
     Indication: PRODUCT USED FOR UNKNOWN INDICATION
     Route: 065

REACTIONS (2)
  - Pupillary reflex impaired [Recovered/Resolved]
  - Blindness transient [Recovered/Resolved]
